FAERS Safety Report 7410253-3 (Version None)
Quarter: 2011Q2

REPORT INFORMATION
  Report Type: 
  Country: None (occurrence: None)
  Receive Date: 20110412
  Receipt Date: 20110301
  Transmission Date: 20111010
  Serious: Yes (Other)
  Sender: FDA-Public Use
  Company Number: PHHY2011PH17183

PATIENT
  Sex: Female
  Weight: 87 kg

DRUGS (2)
  1. GLEEVEC [Suspect]
     Dosage: 800 MG, DAILY
     Route: 048
  2. GLEEVEC [Suspect]
     Indication: CHRONIC MYELOID LEUKAEMIA
     Dosage: 400 MG, DAILY
     Route: 048

REACTIONS (4)
  - OVARIAN CANCER [None]
  - OVARIAN DISORDER [None]
  - ABDOMINAL PAIN LOWER [None]
  - NEOPLASM MALIGNANT [None]
